FAERS Safety Report 5076121-X (Version None)
Quarter: 2006Q3

REPORT INFORMATION
  Report Type: 
  Country: None (occurrence: None)
  Receive Date: 20060807
  Receipt Date: 20060403
  Transmission Date: 20061208
  Serious: Yes (Other)
  Sender: FDA-Public Use
  Company Number: 2006046817

PATIENT
  Age: 58 Year
  Sex: Female
  Weight: 76.2043 kg

DRUGS (14)
  1. LYRICA [Suspect]
     Indication: CONVULSION
     Dosage: 150 MG (75 MG, 2 IN 1 D), ORAL
     Route: 048
     Dates: start: 20060101, end: 20060403
  2. ADVAIR DISKUS 100/50 [Concomitant]
  3. HYDROCHLOROTHIAZIDE [Concomitant]
  4. LIPITOR [Concomitant]
  5. FOSAMAX [Concomitant]
  6. PROTONIX [Concomitant]
  7. TOPAMAX [Concomitant]
  8. ALBUTEROL [Concomitant]
  9. METFORMIN (METFORMIN) [Concomitant]
  10. LEVOTHYROXINE SODIUM [Concomitant]
  11. AMITRIPTYLINE (AMITRIPTYLINE) [Concomitant]
  12. DILANTIN [Concomitant]
  13. NAPROXEN [Concomitant]
  14. ACETAMINOPHEN [Concomitant]

REACTIONS (9)
  - BLOOD GLUCOSE INCREASED [None]
  - CONVULSION [None]
  - FALL [None]
  - HAEMORRHAGE [None]
  - HYPOGLYCAEMIA [None]
  - PETECHIAE [None]
  - SYNCOPE [None]
  - THERAPY NON-RESPONDER [None]
  - THROMBOCYTOPENIA [None]
